FAERS Safety Report 8223548-0 (Version None)
Quarter: 2012Q1

REPORT INFORMATION
  Report Type: 
  Country: None (occurrence: None)
  Receive Date: 20120316
  Receipt Date: 20120306
  Transmission Date: 20120608
  Serious: Yes (Hospitalization)
  Sender: FDA-Public Use
  Company Number: 2012-1149

PATIENT
  Age: 74 Year
  Sex: Male

DRUGS (5)
  1. DYSPORT [Suspect]
     Indication: PARAPARESIS
     Dosage: 2000 UNITS (2000 UNITS, SINGLE CYCLE), INTRAMUSCULAR
     Route: 030
     Dates: start: 20120120, end: 20120120
  2. LIORESAL [Concomitant]
  3. TOLTERODINE TARTRATE [Concomitant]
  4. TIZANIDINE HYDROCHLORIDE [Concomitant]
  5. NEURONTIN [Concomitant]

REACTIONS (1)
  - RHABDOMYOLYSIS [None]
